FAERS Safety Report 5332341-8 (Version None)
Quarter: 2007Q2

REPORT INFORMATION
  Report Type: 
  Country: None (occurrence: None)
  Receive Date: 20070523
  Receipt Date: 20070518
  Transmission Date: 20071010
  Serious: Yes (Other)
  Sender: FDA-Public Use
  Company Number: A0651941A

PATIENT
  Sex: Female

DRUGS (2)
  1. LAMICTAL [Suspect]
     Indication: EPILEPSY
     Dosage: 175MG TWICE PER DAY
     Route: 048
     Dates: start: 20070201
  2. COLACE [Concomitant]

REACTIONS (3)
  - ALOPECIA [None]
  - CONVULSION [None]
  - OCULAR HYPERAEMIA [None]
